FAERS Safety Report 5932980-7 (Version None)
Quarter: 2008Q4

REPORT INFORMATION
  Report Type: 
  Country: None (occurrence: None)
  Receive Date: 20081027
  Receipt Date: 20081027
  Transmission Date: 20090506
  Serious: No
  Sender: FDA-Public Use
  Company Number: None

PATIENT
  Age: 76 Year
  Sex: Female
  Weight: 88.4514 kg

DRUGS (1)
  1. NITROFURANTOIN [Suspect]
     Indication: DIZZINESS
     Dosage: 1 CAPSULE TWICE DAILY
     Dates: start: 20081023, end: 20081024

REACTIONS (3)
  - DIZZINESS [None]
  - NOCTURIA [None]
  - POLYURIA [None]
